FAERS Safety Report 7974112-X (Version None)
Quarter: 2011Q4

REPORT INFORMATION
  Report Type: 
  Country: None (occurrence: None)
  Receive Date: 20111213
  Receipt Date: 20111209
  Transmission Date: 20120403
  Serious: Yes (Life-Threatening)
  Sender: FDA-Public Use
  Company Number: PHHY2011GB107543

PATIENT
  Age: 71 Year
  Sex: Male

DRUGS (3)
  1. CLARITHROMYCIN [Suspect]
     Indication: LOWER RESPIRATORY TRACT INFECTION
     Dosage: 500 MG, BID
     Route: 048
     Dates: start: 20110922, end: 20110929
  2. DOXYCYCLINE [Suspect]
     Indication: LOWER RESPIRATORY TRACT INFECTION
     Dosage: 100 MG, QD
     Dates: start: 20110822, end: 20110829
  3. TRIMETHOPRIM [Suspect]
     Indication: LOWER RESPIRATORY TRACT INFECTION
     Dosage: 200 MG, BID
     Route: 048
     Dates: start: 20110922, end: 20110929

REACTIONS (1)
  - ACQUIRED HAEMOPHILIA [None]
